FAERS Safety Report 12146374 (Version 1)
Quarter: 2016Q1

REPORT INFORMATION
  Report Type: Report from Study
  Country: ES (occurrence: ES)
  Receive Date: 20160304
  Receipt Date: 20160304
  Transmission Date: 20160526
  Serious: Yes (Other)
  Sender: FDA-Public Use
  Company Number: ES-009507513-1602ESP012924

PATIENT

DRUGS (4)
  1. BUPARLISIB [Suspect]
     Active Substance: BUPARLISIB HYDROCHLORIDE
     Indication: GLIOBLASTOMA
     Dosage: 150 MG/M2 ON DAY 1-5/Q28 (CYCLE 1)
  2. TEMOZOLOMIDE. [Suspect]
     Active Substance: TEMOZOLOMIDE
     Indication: GLIOBLASTOMA
     Dosage: 80 MG, QD (CYCLE 1)
  3. BUPARLISIB [Suspect]
     Active Substance: BUPARLISIB HYDROCHLORIDE
     Dosage: 200 MG/M2 ON DAY 1-5/Q28 (CYCLE 2-12)
  4. TEMOZOLOMIDE. [Suspect]
     Active Substance: TEMOZOLOMIDE
     Dosage: 60 MG/80 MG, QD (CYCLES 2-12)

REACTIONS (4)
  - Neutropenia [Unknown]
  - Lipase increased [Unknown]
  - Thrombocytopenia [Unknown]
  - Hyperglycaemia [Unknown]
